FAERS Safety Report 9849628 (Version 1)
Quarter: 2014Q1

REPORT INFORMATION
  Report Type: Spontaneous
  Country: US (occurrence: None)
  Receive Date: 20140124
  Receipt Date: 20140124
  Transmission Date: 20141002
  Serious: Yes (Hospitalization, Other)
  Sender: FDA-Public Use
  Company Number: AUR-APL-2014-00515

PATIENT
  Age: 42 Year
  Sex: Female

DRUGS (19)
  1. TOPIRAMATE [Suspect]
     Indication: CONVULSION
     Dosage: (150 MG, 3 IN 1 D)
     Route: 048
     Dates: start: 201312
  2. TOPIRAMATE [Suspect]
     Indication: HEADACHE
     Dosage: (150 MG, 3 IN 1 D)
     Route: 048
     Dates: start: 201312
  3. TOPAMAX (TOPIRAMATE) [Suspect]
     Indication: HEADACHE
     Dosage: (150 MG, 3 IN 1 D)
     Route: 048
  4. PREDNISONE (PREDNISONE) [Suspect]
     Indication: RESPIRATORY DISORDER
     Route: 048
     Dates: start: 201311
  5. SINGULAIR [Concomitant]
  6. MIRALAX (MACROGOL) [Concomitant]
  7. NICOTINE (NICOTINE) [Concomitant]
  8. PRILOSEC (OMEPRAZOLE) [Concomitant]
  9. SYMBICORT [Concomitant]
  10. ADVAIR DISKUS [Concomitant]
  11. ATIVAN (LORAZEPAM) [Concomitant]
  12. COLACE [Concomitant]
  13. BACLOFEN (BACLOFEN) [Concomitant]
  14. MOTRIN (IBUPROFEN) [Concomitant]
  15. TYLENOL (PARACETAMOL) [Concomitant]
  16. ALBUTEROL (SALBUTAMOL) [Concomitant]
  17. IPRATROPIUM (IPRATROPIUM) [Concomitant]
  18. PEDIALYTE (PAEDIALYTE) [Concomitant]
  19. BENADRYL (DIPHENHYDRAMINE HYDROCHLORIDE) [Concomitant]

REACTIONS (21)
  - Inappropriate schedule of drug administration [None]
  - Drug dispensing error [None]
  - Product substitution issue [None]
  - Malaise [None]
  - Malaise [None]
  - Vomiting [None]
  - Tremor [None]
  - Personality change [None]
  - Mood swings [None]
  - Convulsion [None]
  - Visual impairment [None]
  - Dysgeusia [None]
  - Product colour issue [None]
  - Product odour abnormal [None]
  - Product taste abnormal [None]
  - Weight increased [None]
  - Dyspnoea [None]
  - Chest pain [None]
  - Viral infection [None]
  - Adverse drug reaction [None]
  - Product quality issue [None]
